FAERS Safety Report 7301658-X (Version None)
Quarter: 2011Q1

REPORT INFORMATION
  Report Type: 
  Country: None (occurrence: None)
  Receive Date: 20110208
  Receipt Date: 20110124
  Transmission Date: 20110831
  Serious: Yes (Other)
  Sender: FDA-Public Use
  Company Number: 2010MA004700

PATIENT
  Age: 49 Year
  Sex: Male

DRUGS (7)
  1. METFORMIN [Concomitant]
  2. PREV MEDS [Concomitant]
  3. ADIZEM-XL [Concomitant]
  4. DOXAZOSIN MESYLATE [Suspect]
     Indication: HYPERTENSION
     Dosage: 2 MG;QD;PO
     Route: 048
     Dates: start: 20100816, end: 20100901
  5. HUMALOG [Concomitant]
  6. RAMIPRIL [Concomitant]
  7. ATORVASTATIN [Concomitant]

REACTIONS (7)
  - TUNNEL VISION [None]
  - LETHARGY [None]
  - MUSCULOSKELETAL STIFFNESS [None]
  - AURA [None]
  - FATIGUE [None]
  - FACE OEDEMA [None]
  - NECK PAIN [None]
